FAERS Safety Report 6597687-4 (Version None)
Quarter: 2010Q1

REPORT INFORMATION
  Report Type: 
  Country: None (occurrence: None)
  Receive Date: 20100216
  Receipt Date: 20100129
  Transmission Date: 20100710
  Serious: Yes (Life-Threatening, Hospitalization)
  Sender: FDA-Public Use
  Company Number: 2010020017

PATIENT
  Age: 70 Year
  Sex: Female
  Weight: 70 kg

DRUGS (15)
  1. TORSEMIDE [Suspect]
     Indication: HYPERTENSION
     Dosage: 10 MG (10 MG, 1 IN 1 D), ORAL
     Route: 048
     Dates: end: 20090804
  2. ENEAS (NITRENDIPINE, ENALAPRIL MALEATE) [Suspect]
     Indication: HYPERTENSION
     Dosage: 10MG ENALAPRIL + 20MG NITRENDIPIN (1 DOSAGE FORMS, 1 IN 1 D), ORAL
     Route: 048
     Dates: end: 20090802
  3. ENALAPRIL MALEATE [Suspect]
     Indication: HYPERTENSION
     Dosage: 10 MG (10 MG, 1 IN 1 D)
     Dates: end: 20090802
  4. BISOPROLOL FUMARATE AND HYDROCHLOROTHIAZIDE [Suspect]
     Indication: HYPERTENSION
     Dosage: 5MG BISOPROLOL + 12.5 HCT (1 DOSAGE FORMS, 1 IN 1 D), ORAL
     Route: 048
     Dates: end: 20090802
  5. SPIRONOLACTONE [Suspect]
     Indication: HYPERTENSION
     Dosage: 25 MG (25 MG, 1 IN 1 D), ORAL
     Route: 048
     Dates: end: 20090802
  6. DOXAZOSIN MESYLATE [Suspect]
     Indication: HYPERTENSION
     Dosage: 4 MG (4 MG, 1 IN 1 D), ORAL
     Route: 048
  7. VENLAFAXINE HCL [Suspect]
     Dosage: 75 MG (37.5 MG, 2 IN 1 D), ORAL
     Route: 048
     Dates: end: 20090803
  8. DICLOFENAC SODIUM [Suspect]
     Indication: PAIN
     Dosage: 50 MG (50 MG, 1 IN 1 D), ORAL
     Route: 048
     Dates: end: 20090802
  9. DIGITOXIN (DIGTOXIN) [Concomitant]
  10. METFORMIN HCL [Concomitant]
  11. XALATAN [Concomitant]
  12. ACTRAPID INSULIN (INSULIN) [Concomitant]
  13. LANTUS [Concomitant]
  14. ASPIRIN [Concomitant]
  15. NIASPAN [Concomitant]

REACTIONS (8)
  - BICYTOPENIA [None]
  - DEHYDRATION [None]
  - DRY SKIN [None]
  - ERYTHROPENIA [None]
  - MUCOSAL DRYNESS [None]
  - PALLOR [None]
  - RENAL FAILURE ACUTE [None]
  - THROMBOCYTOPENIA [None]
